FAERS Safety Report 6194201 (Version 2)
Quarter: 2012Q4

REPORT INFORMATION
  Report Type: 
  Country: US (occurrence: US)
  Receive Date: 20061220
  Receipt Date: 20121218
  Transmission Date: 20130627
  Serious: No
  Sender: FDA-Public Use
  Company Number: US-GLAXOSMITHKLINE-A0605352A

PATIENT
  Age: 41 Year
  Sex: Male

DRUGS (1)
  1. COMMIT [Suspect]
     Indication: SMOKING CESSATION THERAPY
     Route: 002

REACTIONS (1)
  - Intentional drug misuse [Not Recovered/Not Resolved]
